FAERS Safety Report 8562980 (Version 2)
Quarter: 2012Q4

REPORT INFORMATION
  Report Type: 
  Country: US (occurrence: US)
  Receive Date: 20120515
  Receipt Date: 20121012
  Transmission Date: 20130627
  Serious: Yes (Hospitalization)
  Sender: FDA-Public Use
  Company Number: US-BAYER-2012-046848

PATIENT
  Age: 20 Year
  Sex: Female

DRUGS (6)
  1. YAZ [Suspect]
     Indication: PREMENSTRUAL SYNDROME
  2. MORPHINE [Concomitant]
     Indication: PAIN
  3. TORADOL [Concomitant]
     Indication: PAIN
  4. BENADRYL [Concomitant]
  5. LEVSIN [Concomitant]
  6. ATIVAN [Concomitant]
     Indication: ANXIETY
     Dosage: 1 mg, UNK
     Route: 042

REACTIONS (8)
  - Gallbladder injury [None]
  - Cholecystitis chronic [None]
  - Injury [None]
  - Pain [None]
  - General physical health deterioration [None]
  - Anxiety [None]
  - Emotional distress [None]
  - General physical health deterioration [None]
